FAERS Safety Report 6335392-X (Version None)
Quarter: 2009Q3

REPORT INFORMATION
  Report Type: 
  Country: None (occurrence: None)
  Receive Date: 20090831
  Receipt Date: 20090818
  Transmission Date: 20100115
  Serious: Yes (Other)
  Sender: FDA-Public Use
  Company Number: PHHY2009GB34957

PATIENT
  Sex: Male

DRUGS (1)
  1. CLOZARIL [Suspect]
     Indication: SCHIZOPHRENIA
     Dosage: UNK
     Dates: start: 20090214

REACTIONS (3)
  - ELECTROCARDIOGRAM QT PROLONGED [None]
  - MYOCARDIAL ISCHAEMIA [None]
  - SYNCOPE [None]
